FAERS Safety Report 8433025-X (Version None)
Quarter: 2012Q2

REPORT INFORMATION
  Report Type: 
  Country: None (occurrence: None)
  Receive Date: 20120323
  Receipt Date: 20110714
  Transmission Date: 20120825
  Serious: Yes (Other)
  Sender: FDA-Public Use
  Company Number: 163-21880-11071824

PATIENT
  Age: 80 Year
  Sex: Female
  Weight: 81.6475 kg

DRUGS (2)
  1. REVLIMID [Suspect]
     Indication: MULTIPLE MYELOMA
     Dosage: 10 MG, 1 IN 1 D, PO ; 25 MG, 1 IN 1 D, PO
     Route: 048
     Dates: start: 20110601
  2. REVLIMID [Suspect]
     Indication: MULTIPLE MYELOMA
     Dosage: 10 MG, 1 IN 1 D, PO ; 25 MG, 1 IN 1 D, PO
     Route: 048
     Dates: start: 20110618, end: 20110701

REACTIONS (5)
  - ASTHENIA [None]
  - HYPOAESTHESIA ORAL [None]
  - TREMOR [None]
  - DIARRHOEA [None]
  - ARTHRALGIA [None]
